FAERS Safety Report 12393979 (Version 3)
Quarter: 2016Q2

REPORT INFORMATION
  Report Type: Spontaneous
  Country: DE (occurrence: DE)
  Receive Date: 20160523
  Receipt Date: 20160606
  Transmission Date: 20160815
  Serious: Yes (Life-Threatening, Hospitalization)
  Sender: FDA-Public Use
  Company Number: DE-STALLERGENES SAS-1052624

PATIENT
  Age: 51 Year
  Sex: Female

DRUGS (1)
  1. ORALAIR [Suspect]
     Active Substance: ANTHOXANTHUM ODORATUM POLLEN\DACTYLIS GLOMERATA POLLEN\LOLIUM PERENNE POLLEN\PHLEUM PRATENSE POLLEN\POA PRATENSIS POLLEN
     Indication: PRODUCT USED FOR UNKNOWN INDICATION
     Route: 060
     Dates: start: 20160228, end: 201603

REACTIONS (18)
  - Compartment syndrome [Not Recovered/Not Resolved]
  - Dizziness [Unknown]
  - Blood pressure immeasurable [Not Recovered/Not Resolved]
  - Disturbance in attention [Not Recovered/Not Resolved]
  - Diarrhoea [Unknown]
  - Vomiting [Unknown]
  - Prerenal failure [Not Recovered/Not Resolved]
  - Condition aggravated [Unknown]
  - Capillary leak syndrome [Not Recovered/Not Resolved]
  - Presyncope [Unknown]
  - Hypoalbuminaemia [Unknown]
  - Cardiovascular insufficiency [Not Recovered/Not Resolved]
  - Feeling abnormal [Unknown]
  - Malaise [Not Recovered/Not Resolved]
  - Systemic inflammatory response syndrome [Not Recovered/Not Resolved]
  - Urticaria [Unknown]
  - Cachexia [Unknown]
  - Polycythaemia [Recovering/Resolving]

NARRATIVE: CASE EVENT DATE: 20160228
